FAERS Safety Report 9091258 (Version 1)
Quarter: 2013Q1

REPORT INFORMATION
  Report Type: Report from Study
  Country: US (occurrence: US)
  Receive Date: 20130131
  Receipt Date: 20130131
  Transmission Date: 20140127
  Serious: No
  Sender: FDA-Public Use
  Company Number: US-ABBOTT-12P-163-1000498-00

PATIENT
  Age: 47 Year
  Sex: Female

DRUGS (1)
  1. HUMIRA [Suspect]
     Indication: PSORIATIC ARTHROPATHY
     Route: 058
     Dates: start: 201207

REACTIONS (8)
  - Diarrhoea [Not Recovered/Not Resolved]
  - Nausea [Unknown]
  - Vomiting [Unknown]
  - Otitis media [Not Recovered/Not Resolved]
  - Vertigo [Unknown]
  - Loss of consciousness [Not Recovered/Not Resolved]
  - Blood potassium increased [Not Recovered/Not Resolved]
  - White blood cell count increased [Unknown]
